FAERS Safety Report 16792004 (Version 3)
Quarter: 2025Q3

REPORT INFORMATION
  Report Type: Spontaneous
  Country: EU (occurrence: EU)
  Receive Date: 20190910
  Receipt Date: 20250829
  Transmission Date: 20251020
  Serious: Yes (Death, Other)
  Sender: MYLAN
  Company Number: EU-PFIZER INC-15852

PATIENT
  Age: 16 Year
  Sex: Female

DRUGS (15)
  1. METHOTREXATE [Suspect]
     Active Substance: METHOTREXATE
     Indication: Medulloblastoma
  2. METHOTREXATE [Suspect]
     Active Substance: METHOTREXATE
  3. METHOTREXATE [Suspect]
     Active Substance: METHOTREXATE
     Indication: Medulloblastoma
  4. ETOPOSIDE [Suspect]
     Active Substance: ETOPOSIDE
     Indication: Brain cancer metastatic
     Route: 065
  5. ETOPOSIDE [Suspect]
     Active Substance: ETOPOSIDE
     Indication: Medulloblastoma
  6. CYCLOPHOSPHAMIDE [Suspect]
     Active Substance: CYCLOPHOSPHAMIDE
     Indication: Brain cancer metastatic
  7. CYCLOPHOSPHAMIDE [Suspect]
     Active Substance: CYCLOPHOSPHAMIDE
     Indication: Medulloblastoma
  8. VINCRISTINE SULFATE [Suspect]
     Active Substance: VINCRISTINE SULFATE
     Indication: Brain cancer metastatic
  9. VINCRISTINE SULFATE [Suspect]
     Active Substance: VINCRISTINE SULFATE
     Indication: Medulloblastoma
  10. CARBOPLATIN [Suspect]
     Active Substance: CARBOPLATIN
     Indication: Brain cancer metastatic
  11. CARBOPLATIN [Suspect]
     Active Substance: CARBOPLATIN
     Indication: Medulloblastoma
  12. CYTARABINE [Suspect]
     Active Substance: CYTARABINE
     Indication: Brain cancer metastatic
  13. CYTARABINE [Suspect]
     Active Substance: CYTARABINE
     Indication: Medulloblastoma
  14. CISPLATIN [Suspect]
     Active Substance: CISPLATIN
     Indication: Brain cancer metastatic
  15. CISPLATIN [Suspect]
     Active Substance: CISPLATIN
     Indication: Medulloblastoma

REACTIONS (4)
  - Glioblastoma multiforme [Fatal]
  - Second primary malignancy [Fatal]
  - Product use in unapproved indication [Unknown]
  - Product use issue [Unknown]
